FAERS Safety Report 12318011 (Version 2)
Quarter: 2016Q2

REPORT INFORMATION
  Report Type: Spontaneous
  Country: ES (occurrence: ES)
  Receive Date: 20160429
  Receipt Date: 20160510
  Transmission Date: 20160815
  Serious: Yes (Hospitalization, Other)
  Sender: FDA-Public Use
  Company Number: ES-ABBVIE-16P-144-1613259-00

PATIENT
  Age: 71 Year
  Sex: Female
  Weight: 80 kg

DRUGS (8)
  1. VIEKIRAX [Suspect]
     Active Substance: OMBITASVIR\PARITAPREVIR\RITONAVIR
     Indication: HEPATITIS C
     Route: 048
     Dates: start: 20160316, end: 20160418
  2. EXVIERA [Suspect]
     Active Substance: DASABUVIR
     Route: 048
     Dates: start: 20160422
  3. SERTRALINE [Concomitant]
     Active Substance: SERTRALINE HYDROCHLORIDE
     Indication: DEPRESSION
  4. REBETOL [Suspect]
     Active Substance: RIBAVIRIN
     Route: 048
     Dates: start: 20160422
  5. REBETOL [Suspect]
     Active Substance: RIBAVIRIN
     Indication: HEPATITIS C
     Dosage: 3 IN THE AM AND 2 IN THE PM (3-0-2)
     Route: 048
     Dates: start: 20160316, end: 20160418
  6. VIEKIRAX [Suspect]
     Active Substance: OMBITASVIR\PARITAPREVIR\RITONAVIR
     Route: 048
     Dates: start: 20160422
  7. EXVIERA [Suspect]
     Active Substance: DASABUVIR
     Indication: HEPATITIS C
     Route: 048
     Dates: start: 20160316, end: 20160418
  8. ENALAPRIL [Concomitant]
     Active Substance: ENALAPRIL
     Indication: HYPERTENSION
     Route: 048

REACTIONS (3)
  - Intestinal obstruction [Recovered/Resolved]
  - Diarrhoea [Recovered/Resolved]
  - Incarcerated umbilical hernia [Recovered/Resolved]

NARRATIVE: CASE EVENT DATE: 20160406
